FAERS Safety Report 13830378 (Version 2)
Quarter: 2018Q2

REPORT INFORMATION
  Report Type: Spontaneous
  Country: US (occurrence: US)
  Receive Date: 20170803
  Receipt Date: 20180430
  Transmission Date: 20180711
  Serious: No
  Sender: FDA-Public Use
  Company Number: US-SA-2017SA080839

PATIENT
  Sex: Female

DRUGS (25)
  1. PRALUENT [Suspect]
     Active Substance: ALIROCUMAB
     Indication: OSTEOPOROSIS
     Route: 058
  2. CLARINEX [Concomitant]
     Active Substance: DESLORATADINE
  3. ALPRAZOLAM. [Concomitant]
     Active Substance: ALPRAZOLAM
  4. CELECOXIB. [Concomitant]
     Active Substance: CELECOXIB
  5. HYDROCODONE BITARTRATE AND ACETAMINOPHEN [Concomitant]
     Active Substance: ACETAMINOPHEN\HYDROCODONE BITARTRATE
  6. MIRTAZAPINE. [Concomitant]
     Active Substance: MIRTAZAPINE
  7. SYNTHROID [Concomitant]
     Active Substance: LEVOTHYROXINE SODIUM
  8. PRALUENT [Suspect]
     Active Substance: ALIROCUMAB
     Indication: TYPE IIA HYPERLIPIDAEMIA
     Route: 058
  9. PENTOXIFYLLINE. [Concomitant]
     Active Substance: PENTOXIFYLLINE
  10. CARBAMAZEPINE. [Concomitant]
     Active Substance: CARBAMAZEPINE
  11. ATENOLOL. [Concomitant]
     Active Substance: ATENOLOL
  12. MONTELUKAST [Concomitant]
     Active Substance: MONTELUKAST SODIUM
  13. METOCLOPRAMIDE. [Concomitant]
     Active Substance: METOCLOPRAMIDE
  14. ESOMEPRAZOLE MAGNESIUM. [Concomitant]
     Active Substance: ESOMEPRAZOLE MAGNESIUM
  15. FLOVENT [Concomitant]
     Active Substance: FLUTICASONE PROPIONATE
  16. LINZESS [Concomitant]
     Active Substance: LINACLOTIDE
  17. MECLIZINE [Concomitant]
     Active Substance: MECLIZINE HYDROCHLORIDE
  18. ORPHENADRINE [Concomitant]
     Active Substance: ORPHENADRINE
  19. PREDNISONE. [Concomitant]
     Active Substance: PREDNISONE
  20. PROAIR HFA [Concomitant]
     Active Substance: ALBUTEROL SULFATE
  21. ALIROCUMAB PREFILLED PEN [Suspect]
     Active Substance: ALIROCUMAB
     Indication: OSTEOPOROSIS
  22. FLUTICASONE. [Concomitant]
     Active Substance: FLUTICASONE
  23. ALIROCUMAB PREFILLED PEN [Suspect]
     Active Substance: ALIROCUMAB
     Indication: TYPE IIA HYPERLIPIDAEMIA
  24. LOSARTAN. [Concomitant]
     Active Substance: LOSARTAN
  25. VENTOLIN HFA [Concomitant]
     Active Substance: ALBUTEROL SULFATE

REACTIONS (3)
  - Injection site rash [Recovered/Resolved]
  - Vision blurred [Not Recovered/Not Resolved]
  - Balance disorder [Not Recovered/Not Resolved]
